FAERS Safety Report 5337932-6 (Version None)
Quarter: 2007Q2

REPORT INFORMATION
  Report Type: 
  Country: None (occurrence: None)
  Receive Date: 20070327
  Receipt Date: 20070220
  Transmission Date: 20071010
  Serious: No
  Sender: FDA-Public Use
  Company Number: 236985

PATIENT
  Age: 56 Year
  Sex: Female

DRUGS (3)
  1. AVASTIN [Suspect]
     Indication: NON-SMALL CELL LUNG CANCER
  2. TAXOL [Concomitant]
  3. CARBOPLATIN [Concomitant]

REACTIONS (2)
  - HAEMATURIA [None]
  - URINARY TRACT INFECTION [None]
